FAERS Safety Report 15329204 (Version 1)
Quarter: 2018Q3

REPORT INFORMATION
  Report Type: Spontaneous
  Country: US (occurrence: US)
  Receive Date: 20180829
  Receipt Date: 20180829
  Transmission Date: 20181010
  Serious: No
  Sender: FDA-Public Use
  Company Number: US-BAYER-2018-161054

PATIENT
  Age: 88 Year
  Sex: Male
  Weight: 83.99 kg

DRUGS (1)
  1. MIRALAX [Suspect]
     Active Substance: POLYETHYLENE GLYCOL 3350
     Indication: CONSTIPATION PROPHYLAXIS
     Dosage: 0.5 DF, UNK
     Route: 048
     Dates: start: 201805

REACTIONS (4)
  - Underdose [Unknown]
  - Anal incontinence [Recovered/Resolved]
  - Product use in unapproved indication [Unknown]
  - Faeces soft [Recovered/Resolved]

NARRATIVE: CASE EVENT DATE: 201805
